FAERS Safety Report 6093221-6 (Version None)
Quarter: 2009Q1

REPORT INFORMATION
  Report Type: 
  Country: None (occurrence: None)
  Receive Date: 20090226
  Receipt Date: 20090223
  Transmission Date: 20090719
  Serious: Yes (Death, Other)
  Sender: FDA-Public Use
  Company Number: US-BRISTOL-MYERS SQUIBB COMPANY-14518336

PATIENT
  Age: 21 Year
  Sex: Male

DRUGS (12)
  1. CISPLATIN [Suspect]
     Indication: CHORIOCARCINOMA
     Dosage: 4 CYCLES WITH WBRT AND 1 CYCLE UNDER SALVAGE CHEMOTHERAPY.
  2. CISPLATIN [Suspect]
     Indication: SEMINOMA
     Dosage: 4 CYCLES WITH WBRT AND 1 CYCLE UNDER SALVAGE CHEMOTHERAPY.
  3. ETOPOSIDE [Suspect]
     Indication: CHORIOCARCINOMA
     Dosage: TREATED WITH 4 CYCLES; THEN GIVEN DAILY FOR 3 MONTHS
     Route: 048
  4. ETOPOSIDE [Suspect]
     Indication: SEMINOMA
     Dosage: TREATED WITH 4 CYCLES; THEN GIVEN DAILY FOR 3 MONTHS
     Route: 048
  5. IFOSFAMIDE [Suspect]
     Indication: CHORIOCARCINOMA
  6. IFOSFAMIDE [Suspect]
     Indication: SEMINOMA
  7. BLEOMYCIN SULFATE [Suspect]
     Indication: CHORIOCARCINOMA
  8. BLEOMYCIN SULFATE [Suspect]
     Indication: SEMINOMA
  9. VINBLASTINE [Suspect]
     Indication: CHORIOCARCINOMA
  10. VINBLASTINE [Suspect]
     Indication: SEMINOMA
  11. RADIATION THERAPY [Suspect]
     Indication: CHORIOCARCINOMA
     Dosage: 1 DOSAGEFORM = 4140 CGY.
  12. RADIATION THERAPY [Suspect]
     Indication: SEMINOMA
     Dosage: 1 DOSAGEFORM = 4140 CGY.

REACTIONS (2)
  - MALIGNANT NEOPLASM PROGRESSION [None]
  - PROGRESSIVE MULTIFOCAL LEUKOENCEPHALOPATHY [None]
